FAERS Safety Report 7956953-8 (Version None)
Quarter: 2011Q4

REPORT INFORMATION
  Report Type: 
  Country: None (occurrence: None)
  Receive Date: 20111205
  Receipt Date: 20111121
  Transmission Date: 20120403
  Serious: Yes (Hospitalization)
  Sender: FDA-Public Use
  Company Number: GB-ROCHE-1015315

PATIENT
  Sex: Male

DRUGS (11)
  1. AVASTIN [Suspect]
     Indication: DIABETIC RETINAL OEDEMA
  2. NOVOLOG MIX 70/30 [Concomitant]
     Dates: start: 20090611
  3. RANIBIZUMAB [Suspect]
     Indication: DIABETIC RETINAL OEDEMA
     Route: 050
     Dates: start: 20110217, end: 20110217
  4. ATORVASTATIN [Concomitant]
     Dates: start: 20010330
  5. DIPYRIDAMOLE [Concomitant]
     Dates: start: 20051216, end: 20111030
  6. METFORMIN HCL [Concomitant]
     Dates: start: 20040914
  7. ASPIRIN [Concomitant]
     Dates: start: 20110806, end: 20111030
  8. ISOSORBIDE MONONITRATE [Concomitant]
     Dates: start: 20060105
  9. RANIBIZUMAB [Suspect]
     Dates: start: 20111012, end: 20111012
  10. IRBESARTAN [Concomitant]
     Dates: start: 20061031
  11. FUROSEMIDE [Concomitant]
     Dates: start: 20071202

REACTIONS (2)
  - TRANSIENT ISCHAEMIC ATTACK [None]
  - CONCOMITANT DISEASE PROGRESSION [None]
